FAERS Safety Report 18561042 (Version 10)
Quarter: 2021Q3

REPORT INFORMATION
  Report Type: Report from Study
  Country: CO (occurrence: CO)
  Receive Date: 20201130
  Receipt Date: 20210910
  Transmission Date: 20211014
  Serious: Yes (Hospitalization, Other)
  Sender: FDA-Public Use
  Company Number: CO-SEATTLE GENETICS-2020SGN02093

PATIENT
  Age: 57 Year
  Sex: Male
  Weight: 62 kg

DRUGS (8)
  1. FUROSEMIDE. [Concomitant]
     Active Substance: FUROSEMIDE
     Dosage: 40 MILLIGRAM, Q12H
     Route: 048
  2. SPIRONOLACTONE. [Concomitant]
     Active Substance: SPIRONOLACTONE
     Dosage: UNK, UNK, QD
     Route: 048
  3. ESOMEPRAZOLE. [Concomitant]
     Active Substance: ESOMEPRAZOLE MAGNESIUM
     Dosage: 40 MILLIGRAM, QD
     Route: 048
  4. DAPAGLIFLOZIN. [Concomitant]
     Active Substance: DAPAGLIFLOZIN
     Indication: BLOOD GLUCOSE ABNORMAL
     Dosage: UNK
     Route: 065
  5. CARVEDILOL. [Concomitant]
     Active Substance: CARVEDILOL
     Dosage: 6.25 MILLIGRAM, Q12H
     Route: 048
     Dates: start: 2017
  6. BRENTUXIMAB VEDOTIN [Suspect]
     Active Substance: BRENTUXIMAB VEDOTIN
     Indication: HODGKIN^S DISEASE
     Dosage: 76 MILLIGRAM, Q3WEEKS
     Route: 042
     Dates: start: 20200417, end: 20201219
  7. SPIRONOLACTONE. [Concomitant]
     Active Substance: SPIRONOLACTONE
     Dosage: 5 MILLIGRAM, QD
     Route: 048
  8. INSULINA GLARGINA [Concomitant]
     Dosage: 10 INTERNATIONAL UNIT, QD
     Route: 058

REACTIONS (29)
  - Weight decreased [Not Recovered/Not Resolved]
  - Hypokinesia [Not Recovered/Not Resolved]
  - Weight increased [Unknown]
  - Cardiac disorder [Not Recovered/Not Resolved]
  - Localised oedema [Recovering/Resolving]
  - Pain in extremity [Recovering/Resolving]
  - Pain [Not Recovered/Not Resolved]
  - Diabetes mellitus [Not Recovered/Not Resolved]
  - Renal failure [Not Recovered/Not Resolved]
  - General physical health deterioration [Recovering/Resolving]
  - Nephropathy [Not Recovered/Not Resolved]
  - Adverse event [Recovering/Resolving]
  - Pyrexia [Not Recovered/Not Resolved]
  - Catheter site oedema [Recovering/Resolving]
  - Agitation [Not Recovered/Not Resolved]
  - COVID-19 [Not Recovered/Not Resolved]
  - Polyneuropathy [Not Recovered/Not Resolved]
  - Oedema peripheral [Not Recovered/Not Resolved]
  - Gastritis [Not Recovered/Not Resolved]
  - Disorientation [Recovering/Resolving]
  - Hodgkin^s disease [Unknown]
  - Catheter site infection [Recovering/Resolving]
  - Blood uric acid increased [Recovered/Resolved]
  - Oedema [Recovering/Resolving]
  - Pneumonia [Recovering/Resolving]
  - Blood count abnormal [Not Recovered/Not Resolved]
  - Cough [Not Recovered/Not Resolved]
  - Vomiting [Not Recovered/Not Resolved]
  - Diarrhoea [Not Recovered/Not Resolved]

NARRATIVE: CASE EVENT DATE: 20210121
